FAERS Safety Report 10567734 (Version 1)
Quarter: 2014Q4

REPORT INFORMATION
  Report Type: Spontaneous
  Country: US (occurrence: None)
  Receive Date: 20141022
  Receipt Date: 20141022
  Transmission Date: 20150529
  Serious: Yes (Other)
  Sender: FDA-Public Use
  Company Number: GTI002599

PATIENT
  Sex: Male
  Weight: 174.64 kg

DRUGS (24)
  1. GAMUNEX-C [Suspect]
     Active Substance: HUMAN IMMUNOGLOBULIN G
     Indication: CHRONIC INFLAMMATORY DEMYELINATING POLYRADICULONEUROPATHY
     Route: 042
     Dates: start: 2013, end: 20141007
  2. MINIPRESS [Concomitant]
     Active Substance: PRAZOSIN HYDROCHLORIDE
  3. NEBIVOLOL [Concomitant]
     Active Substance: NEBIVOLOL
  4. LIPITOR [Concomitant]
     Active Substance: ATORVASTATIN CALCIUM
  5. PRIVIGEN [Concomitant]
     Active Substance: HUMAN IMMUNOGLOBULIN G
  6. LEVODOPA [Concomitant]
     Active Substance: LEVODOPA
  7. ROPINIROLE. [Concomitant]
     Active Substance: ROPINIROLE
  8. PERCOCET [Concomitant]
     Active Substance: ACETAMINOPHEN\OXYCODONE HYDROCHLORIDE
  9. ASPIRIN. [Concomitant]
     Active Substance: ASPIRIN
  10. ONDANSETRON [Concomitant]
     Active Substance: ONDANSETRON
  11. PRILOSEC [Concomitant]
     Active Substance: OMEPRAZOLE MAGNESIUM
  12. PRANDIN /01393601/ [Concomitant]
  13. PAXIL [Concomitant]
     Active Substance: PAROXETINE HYDROCHLORIDE
  14. CARBIDOPA. [Concomitant]
     Active Substance: CARBIDOPA
  15. VALIUM [Concomitant]
     Active Substance: DIAZEPAM
  16. IRON [Concomitant]
     Active Substance: IRON
  17. ROPINIROLE. [Concomitant]
     Active Substance: ROPINIROLE
  18. LASIX [Concomitant]
     Active Substance: FUROSEMIDE
  19. METOLAZONE. [Concomitant]
     Active Substance: METOLAZONE
  20. VITAMIN B12 [Concomitant]
     Active Substance: CYANOCOBALAMIN
  21. LOSARTAN [Concomitant]
     Active Substance: LOSARTAN
  22. SYNTHROID [Concomitant]
     Active Substance: LEVOTHYROXINE SODIUM
  23. TOPAMAX [Concomitant]
     Active Substance: TOPIRAMATE
  24. LANTUS [Concomitant]
     Active Substance: INSULIN GLARGINE

REACTIONS (8)
  - Acute kidney injury [None]
  - Confusional state [None]
  - Fluid retention [None]
  - Cardiac arrest [None]
  - Weight increased [None]
  - Pulmonary oedema [None]
  - Lobar pneumonia [None]
  - Respiratory arrest [None]
